FAERS Safety Report 21684830 (Version 1)
Quarter: 2022Q4

REPORT INFORMATION
  Report Type: Spontaneous
  Country: CZ (occurrence: CZ)
  Receive Date: 20221205
  Receipt Date: 20221205
  Transmission Date: 20230112
  Serious: Yes (Life-Threatening, Hospitalization, Disabling, Other)
  Sender: FDA-Public Use
  Company Number: None

PATIENT
  Age: 67 Year
  Sex: Male
  Weight: 82 kg

DRUGS (6)
  1. ERLEADA [Suspect]
     Active Substance: APALUTAMIDE
     Indication: Prostate cancer
     Dosage: DAILY FOR TABLETS OF 60 MG.
     Route: 048
     Dates: start: 20220824, end: 20221019
  2. LEUPROLIDE ACETATE [Suspect]
     Active Substance: LEUPROLIDE ACETATE
     Indication: Prostate cancer
     Dosage: THE MEDICINAL PRODUCT IS APPLIED ONCE EVRY THREE MONTHS.
     Route: 058
     Dates: start: 20220308, end: 20220823
  3. FOLIC ACID [Concomitant]
     Active Substance: FOLIC ACID
     Indication: Product used for unknown indication
     Dosage: 1-0-0
     Route: 048
  4. TRANDOLAPRIL [Concomitant]
     Active Substance: TRANDOLAPRIL
     Indication: Product used for unknown indication
     Dosage: 1-0-0
     Route: 048
  5. RENVELA [Concomitant]
     Active Substance: SEVELAMER CARBONATE
     Indication: Product used for unknown indication
     Dosage: 2-0-2, OF 800MG TABLETS
     Route: 048
  6. CINACALCET [Concomitant]
     Active Substance: CINACALCET
     Indication: Product used for unknown indication
     Dosage: 1-0-0
     Route: 048

REACTIONS (8)
  - Cardiac failure [Recovering/Resolving]
  - Atrial fibrillation [Recovering/Resolving]
  - COVID-19 [Unknown]
  - Device related sepsis [Recovering/Resolving]
  - Asthenia [Recovering/Resolving]
  - Chills [Recovering/Resolving]
  - Pyrexia [Recovered/Resolved]
  - Chills [Recovering/Resolving]

NARRATIVE: CASE EVENT DATE: 20221001
